FAERS Safety Report 6665908-5 (Version None)
Quarter: 2010Q2

REPORT INFORMATION
  Report Type: 
  Country: None (occurrence: None)
  Receive Date: 20100402
  Receipt Date: 20100319
  Transmission Date: 20101027
  Serious: Yes (Hospitalization)
  Sender: FDA-Public Use
  Company Number: US-ROCHE-694301

PATIENT
  Age: 64 Year
  Sex: Female

DRUGS (1)
  1. DIAZEPAM [Suspect]
     Indication: ANXIETY
     Route: 065

REACTIONS (1)
  - TACHYCARDIA [None]
